FAERS Safety Report 4786187-X (Version None)
Quarter: 2005Q3

REPORT INFORMATION
  Report Type: 
  Country: None (occurrence: None)
  Receive Date: 20050930
  Receipt Date: 20050930
  Transmission Date: 20060218
  Serious: Yes (Life-Threatening, Hospitalization)
  Sender: FDA-Public Use
  Company Number: None

PATIENT
  Age: 63 Year
  Sex: Female
  Weight: 62.5964 kg

DRUGS (2)
  1. TAXOL [Suspect]
  2. TAXOL [Suspect]

REACTIONS (15)
  - ASTHENIA [None]
  - BLOOD PRESSURE DECREASED [None]
  - CHEST PAIN [None]
  - CONCUSSION [None]
  - CORONARY ARTERY REOCCLUSION [None]
  - DECREASED ACTIVITY [None]
  - DEVICE FAILURE [None]
  - DEVICE MALFUNCTION [None]
  - FALL [None]
  - FEELING ABNORMAL [None]
  - HEAD INJURY [None]
  - LOSS OF CONSCIOUSNESS [None]
  - NAUSEA [None]
  - PHARMACEUTICAL PRODUCT COMPLAINT [None]
  - SYNCOPE [None]
